FAERS Safety Report 8157104-X (Version None)
Quarter: 2012Q1

REPORT INFORMATION
  Report Type: 
  Country: None (occurrence: None)
  Receive Date: 20120222
  Receipt Date: 20120216
  Transmission Date: 20120608
  Serious: Yes (Other)
  Sender: FDA-Public Use
  Company Number: US-ABBOTT-11P-163-0732192-00

PATIENT
  Sex: Female
  Weight: 54.48 kg

DRUGS (8)
  1. IBUPROFEN (ADVIL) [Concomitant]
     Indication: PAIN
  2. FOSAMAX [Concomitant]
     Indication: PRODUCT USED FOR UNKNOWN INDICATION
  3. PRILOSEC [Concomitant]
     Indication: GASTROOESOPHAGEAL REFLUX DISEASE
  4. VITAMINS NOS [Concomitant]
     Indication: VITAMIN SUPPLEMENTATION
  5. METHOTREXATE [Concomitant]
     Indication: RHEUMATOID ARTHRITIS
  6. HUMIRA [Suspect]
     Indication: RHEUMATOID ARTHRITIS
     Route: 058
     Dates: start: 20101201
  7. TRAMADOL HCL [Suspect]
     Indication: PAIN
     Dates: start: 20111001, end: 20120101
  8. CELEBREX [Concomitant]
     Indication: RHEUMATOID ARTHRITIS

REACTIONS (13)
  - RESPIRATORY TRACT CONGESTION [None]
  - ARTHRITIS [None]
  - DIARRHOEA [None]
  - RESTLESS LEGS SYNDROME [None]
  - LATEX ALLERGY [None]
  - CONJUNCTIVITIS INFECTIVE [None]
  - COUGH [None]
  - FALL [None]
  - ARTHRALGIA [None]
  - NASAL CONGESTION [None]
  - IMPAIRED HEALING [None]
  - OROPHARYNGEAL PAIN [None]
  - MENISCUS LESION [None]
